FAERS Safety Report 18727845 (Version 4)
Quarter: 2021Q1

REPORT INFORMATION
  Report Type: Spontaneous
  Country: US (occurrence: US)
  Receive Date: 20210111
  Receipt Date: 20210209
  Transmission Date: 20210419
  Serious: No
  Sender: FDA-Public Use
  Company Number: US-PFIZER INC-2021014716

PATIENT
  Age: 3 Year
  Sex: Male

DRUGS (1)
  1. EUCRISA [Suspect]
     Active Substance: CRISABOROLE
     Indication: DERMATITIS ATOPIC
     Dosage: THIN AMOUNT TOPICALLY TO CHEEKS, ARMS, AND CHIN
     Route: 061

REACTIONS (5)
  - Dermatitis atopic [Unknown]
  - Skin disorder [Unknown]
  - Product dose omission issue [Not Recovered/Not Resolved]
  - Product prescribing issue [Not Recovered/Not Resolved]
  - Feeling abnormal [Unknown]
